FAERS Safety Report 19849731 (Version 2)
Quarter: 2021Q3

REPORT INFORMATION
  Report Type: Spontaneous
  Country: US (occurrence: US)
  Receive Date: 20210917
  Receipt Date: 20210923
  Transmission Date: 20211014
  Serious: Yes (Other)
  Sender: FDA-Public Use
  Company Number: US-GILEAD-2021-0547969

PATIENT
  Age: 54 Year
  Sex: Male
  Weight: 89.21 kg

DRUGS (9)
  1. ELIQUIS [Concomitant]
     Active Substance: APIXABAN
  2. PREDNISONE. [Concomitant]
     Active Substance: PREDNISONE
  3. LOSARTAN. [Concomitant]
     Active Substance: LOSARTAN
  4. AMLODIPINE [Concomitant]
     Active Substance: AMLODIPINE BESYLATE
  5. TYLENOL [Concomitant]
     Active Substance: ACETAMINOPHEN
  6. AMBRISENTAN [Suspect]
     Active Substance: AMBRISENTAN
     Indication: PULMONARY ARTERIAL HYPERTENSION
     Dosage: UNK
     Route: 065
  7. AMBRISENTAN [Suspect]
     Active Substance: AMBRISENTAN
     Indication: PULMONARY HYPERTENSION
  8. TYVASO [Concomitant]
     Active Substance: TREPROSTINIL
     Indication: PULMONARY ARTERIAL HYPERTENSION
     Dosage: 54 TO 72 UG
     Route: 055
  9. MYCOPHENOLATE [Concomitant]
     Active Substance: MYCOPHENOLIC ACID

REACTIONS (19)
  - Interstitial lung disease [Unknown]
  - Nausea [Unknown]
  - Dyspnoea [Unknown]
  - Chronic left ventricular failure [Unknown]
  - Joint stiffness [Unknown]
  - Headache [Unknown]
  - Sleep apnoea syndrome [Unknown]
  - Libido decreased [Unknown]
  - Throat irritation [Unknown]
  - Heart rate increased [Unknown]
  - Cough [Unknown]
  - Chronic respiratory failure [Unknown]
  - Pulmonary embolism [Unknown]
  - Hypoxia [Unknown]
  - Cardiomegaly [Unknown]
  - Arthralgia [Unknown]
  - Right ventricular failure [Unknown]
  - Snoring [Unknown]
  - Left ventricular dysfunction [Unknown]
